FAERS Safety Report 24275362 (Version 1)
Quarter: 2024Q3

REPORT INFORMATION
  Report Type: Spontaneous
  Country: US (occurrence: US)
  Receive Date: 20240903
  Receipt Date: 20240903
  Transmission Date: 20241016
  Serious: No
  Sender: PIRAMAL
  Company Number: US-PCCINC-2024-PPL-000642

PATIENT

DRUGS (2)
  1. GABLOFEN [Suspect]
     Active Substance: BACLOFEN
     Indication: Product used for unknown indication
     Dosage: 1199.2 MICROGRAM/DAY
     Route: 037
  2. GABLOFEN [Suspect]
     Active Substance: BACLOFEN
     Dosage: MINIMUM RATE
     Route: 037
     Dates: start: 20240820

REACTIONS (2)
  - Incorrect dose administered [Recovered/Resolved]
  - Overdose [Recovered/Resolved]
